FAERS Safety Report 11247385 (Version 1)
Quarter: 2015Q3

REPORT INFORMATION
  Report Type: Spontaneous
  Country: US (occurrence: US)
  Receive Date: 20150708
  Receipt Date: 20150708
  Transmission Date: 20151125
  Serious: No
  Sender: FDA-Public Use
  Company Number: US-BAYER-2015-371253

PATIENT
  Age: 89 Year
  Sex: Female
  Weight: 44 kg

DRUGS (8)
  1. IBUPROFEN. [Concomitant]
     Active Substance: IBUPROFEN
  2. ALEVE [Suspect]
     Active Substance: NAPROXEN SODIUM
     Indication: HEADACHE
     Route: 048
  3. NITROSTAT [Concomitant]
     Active Substance: NITROGLYCERIN
  4. ALEVE [Suspect]
     Active Substance: NAPROXEN SODIUM
     Indication: HEADACHE
     Dosage: 3 DF, UNK
     Dates: start: 20150630, end: 20150630
  5. FELODIPINE. [Concomitant]
     Active Substance: FELODIPINE
  6. RANEXA [Concomitant]
     Active Substance: RANOLAZINE
  7. LEVOTHYROXINE. [Concomitant]
     Active Substance: LEVOTHYROXINE
  8. ASPIRIN. [Concomitant]
     Active Substance: ASPIRIN

REACTIONS (2)
  - Drug ineffective [None]
  - Accidental overdose [None]

NARRATIVE: CASE EVENT DATE: 20150629
